FAERS Safety Report 6592937-2 (Version None)
Quarter: 2010Q1

REPORT INFORMATION
  Report Type: 
  Country: None (occurrence: None)
  Receive Date: 20100222
  Receipt Date: 20100205
  Transmission Date: 20100710
  Serious: No
  Sender: FDA-Public Use
  Company Number: US-B.I. PHARMACEUTICALS,INC./RIDGEFIELD-2010-BP-01991YA

PATIENT
  Age: 67 Year
  Sex: Male

DRUGS (3)
  1. TAMSULOSIN HCL [Suspect]
     Indication: PROSTATIC DISORDER
  2. VESICARE [Suspect]
     Indication: MICTURITION URGENCY
     Dosage: 5 MG
     Route: 048
  3. COZAAR [Suspect]
     Indication: HYPERTENSION

REACTIONS (1)
  - DRY MOUTH [None]
